FAERS Safety Report 4680269-9 (Version None)
Quarter: 2005Q2

REPORT INFORMATION
  Report Type: 
  Country: None (occurrence: None)
  Receive Date: 20050601
  Receipt Date: 20050523
  Transmission Date: 20051028
  Serious: Yes (Other)
  Sender: FDA-Public Use
  Company Number: HQWYE904124MAY05

PATIENT
  Sex: Female

DRUGS (12)
  1. EFFEXOR XR [Suspect]
     Indication: BORDERLINE PERSONALITY DISORDER
     Dosage: SEE IMAGE, ORAL
     Route: 048
     Dates: end: 20050101
  2. EFFEXOR XR [Suspect]
     Indication: DEPRESSION
     Dosage: SEE IMAGE, ORAL
     Route: 048
     Dates: end: 20050101
  3. EFFEXOR XR [Suspect]
     Indication: PAIN
     Dosage: SEE IMAGE, ORAL
     Route: 048
     Dates: end: 20050101
  4. EFFEXOR XR [Suspect]
     Indication: BORDERLINE PERSONALITY DISORDER
     Dosage: SEE IMAGE, ORAL
     Route: 048
     Dates: start: 20040501
  5. EFFEXOR XR [Suspect]
     Indication: DEPRESSION
     Dosage: SEE IMAGE, ORAL
     Route: 048
     Dates: start: 20040501
  6. EFFEXOR XR [Suspect]
     Indication: PAIN
     Dosage: SEE IMAGE, ORAL
     Route: 048
     Dates: start: 20040501
  7. EFFEXOR XR [Suspect]
     Indication: BORDERLINE PERSONALITY DISORDER
     Dosage: SEE IMAGE, ORAL
     Route: 048
     Dates: start: 20050101
  8. EFFEXOR XR [Suspect]
     Indication: DEPRESSION
     Dosage: SEE IMAGE, ORAL
     Route: 048
     Dates: start: 20050101
  9. EFFEXOR XR [Suspect]
     Indication: PAIN
     Dosage: SEE IMAGE, ORAL
     Route: 048
     Dates: start: 20050101
  10. QUETIAPINE FUMARATE [Concomitant]
  11. CARBAMAZEPINE [Concomitant]
  12. TRAMADOL HCL [Concomitant]

REACTIONS (5)
  - ATONIC URINARY BLADDER [None]
  - CONDITION AGGRAVATED [None]
  - INTENTIONAL MISUSE [None]
  - SUICIDAL IDEATION [None]
  - URINARY RETENTION [None]
